FAERS Safety Report 6424876-1 (Version None)
Quarter: 2009Q4

REPORT INFORMATION
  Report Type: 
  Country: None (occurrence: None)
  Receive Date: 20091103
  Receipt Date: 20091102
  Transmission Date: 20100525
  Serious: Yes (Other)
  Sender: FDA-Public Use
  Company Number: US-PFIZER INC-2009268214

PATIENT
  Sex: Female
  Weight: 77.098 kg

DRUGS (6)
  1. LYRICA [Suspect]
     Indication: NEUROPATHY PERIPHERAL
     Dosage: 50MG 2X/DAY AND 75MG 1X/DAY
     Route: 048
     Dates: start: 20080101
  2. LYRICA [Suspect]
     Indication: FIBROMYALGIA
  3. CLONIDINE [Concomitant]
     Indication: HYPERTENSION
     Dosage: UNK
  4. DIOVAN [Concomitant]
     Indication: HYPERTENSION
     Dosage: 320 MG, UNK
  5. JANUMET [Concomitant]
     Indication: DIABETES MELLITUS
     Dosage: UNK
  6. CRESTOR [Concomitant]
     Indication: BLOOD CHOLESTEROL INCREASED
     Dosage: UNK

REACTIONS (7)
  - BLOOD CHOLESTEROL INCREASED [None]
  - CARDIAC DISORDER [None]
  - DYSPNOEA [None]
  - RENAL FUNCTION TEST ABNORMAL [None]
  - SOMNOLENCE [None]
  - VISION BLURRED [None]
  - WEIGHT INCREASED [None]
